FAERS Safety Report 19954801 (Version 5)
Quarter: 2022Q4

REPORT INFORMATION
  Report Type: Spontaneous
  Country: SE (occurrence: SE)
  Receive Date: 20211014
  Receipt Date: 20221006
  Transmission Date: 20230112
  Serious: Yes (Hospitalization)
  Sender: FDA-Public Use
  Company Number: SE-ACCORD-240908

PATIENT
  Age: 79 Year
  Sex: Male
  Weight: 77.50 kg

DRUGS (24)
  1. GEMCITABINE HYDROCHLORIDE [Suspect]
     Active Substance: GEMCITABINE HYDROCHLORIDE
     Indication: Diffuse large B-cell lymphoma
     Dosage: 1Q2W
     Route: 042
     Dates: start: 20210610, end: 20210610
  2. OXALIPLATIN [Suspect]
     Active Substance: OXALIPLATIN
     Indication: Diffuse large B-cell lymphoma
     Route: 042
     Dates: start: 20210610, end: 20210610
  3. EPCORITAMAB [Suspect]
     Active Substance: EPCORITAMAB
     Indication: Diffuse large B-cell lymphoma
     Dosage: PRIMING DOSE: 0.16 MG
     Route: 058
     Dates: start: 20210602, end: 20210602
  4. CETIRIZINE HYDROCHLORIDE [Concomitant]
     Active Substance: CETIRIZINE HYDROCHLORIDE
     Dates: start: 20210602, end: 20210624
  5. ACETAMINOPHEN [Concomitant]
     Active Substance: ACETAMINOPHEN
     Dates: start: 20210602, end: 20210624
  6. PREDNISONE [Concomitant]
     Active Substance: PREDNISONE
     Dates: start: 20210602, end: 20210701
  7. BACTRIM [Concomitant]
     Active Substance: SULFAMETHOXAZOLE\TRIMETHOPRIM
     Dates: start: 20181211, end: 20211125
  8. ELIQUIS [Concomitant]
     Active Substance: APIXABAN
     Dates: start: 20210602, end: 20210608
  9. ESCITALOPRAM [Concomitant]
     Active Substance: ESCITALOPRAM OXALATE
     Dates: start: 20201002, end: 20211126
  10. VALACYCLOVIR HYDROCHLORIDE [Concomitant]
     Active Substance: VALACYCLOVIR HYDROCHLORIDE
     Dates: start: 20210610, end: 20211125
  11. ALFUZOSIN [Concomitant]
     Active Substance: ALFUZOSIN
     Dates: start: 20140129, end: 20211125
  12. LOPERAMIDE [Concomitant]
     Active Substance: LOPERAMIDE
     Dates: start: 20210515, end: 20211122
  13. FILGRASTIM [Concomitant]
     Active Substance: FILGRASTIM
     Dates: start: 20201029, end: 20211015
  14. OMEPRAZOLE [Concomitant]
     Active Substance: OMEPRAZOLE
     Dates: start: 20210602, end: 20211122
  15. ONDANSETRON [Concomitant]
     Active Substance: ONDANSETRON
     Dates: start: 20210608, end: 20211126
  16. PRIMPERAN [Concomitant]
     Active Substance: METOCLOPRAMIDE HYDROCHLORIDE
     Dates: start: 20201013, end: 20211126
  17. PROPYLESS [Concomitant]
     Dates: start: 20180523, end: 20211126
  18. FLUCONAZOLE [Concomitant]
     Active Substance: FLUCONAZOLE
     Dates: start: 20210621, end: 20210712
  19. EPCORITAMAB [Suspect]
     Active Substance: EPCORITAMAB
     Indication: Diffuse large B-cell lymphoma
     Dates: start: 20210701
  20. EPCORITAMAB [Suspect]
     Active Substance: EPCORITAMAB
     Indication: Diffuse large B-cell lymphoma
     Dosage: RE-PRIMING DOSE: 0.16MG, SINGLE
     Route: 058
     Dates: start: 20210610, end: 20210610
  21. EPCORITAMAB [Suspect]
     Active Substance: EPCORITAMAB
     Indication: Diffuse large B-cell lymphoma
     Dosage: INTERMEDIATE DOSE: 0.8 MG, SINGLE
     Route: 058
     Dates: start: 20210617, end: 20210617
  22. EPCORITAMAB [Suspect]
     Active Substance: EPCORITAMAB
     Indication: Diffuse large B-cell lymphoma
     Dosage: FULL DOSE: 48 MILLIGRAM, WEEKLY
     Route: 058
  23. GEMCITABINE HYDROCHLORIDE [Suspect]
     Active Substance: GEMCITABINE HYDROCHLORIDE
     Indication: Diffuse large B-cell lymphoma
     Dosage: 1Q2W
     Route: 042
  24. OXALIPLATIN [Suspect]
     Active Substance: OXALIPLATIN
     Indication: Diffuse large B-cell lymphoma
     Route: 042

REACTIONS (1)
  - Cytokine release syndrome [Recovered/Resolved]

NARRATIVE: CASE EVENT DATE: 20210618
